FAERS Safety Report 4821683-8 (Version None)
Quarter: 2005Q4

REPORT INFORMATION
  Report Type: 
  Country: None (occurrence: None)
  Receive Date: 20051103
  Receipt Date: 20051017
  Transmission Date: 20060501
  Serious: Yes (Hospitalization, Other)
  Sender: FDA-Public Use
  Company Number: USA0509107119

PATIENT
  Age: 43 Year
  Sex: Male
  Weight: 74 kg

DRUGS (6)
  1. CYMBALTA [Suspect]
     Dosage: 120 MG
     Dates: start: 20050407
  2. CONCERTA [Concomitant]
  3. ADDERALL 10 [Concomitant]
  4. BUSPAR [Concomitant]
  5. COREG [Concomitant]
  6. BENICAR [Concomitant]

REACTIONS (7)
  - BLOOD CREATININE INCREASED [None]
  - DEHYDRATION [None]
  - HALLUCINATION [None]
  - HYPERTENSIVE CRISIS [None]
  - PROTEIN URINE PRESENT [None]
  - PSYCHOTIC DISORDER [None]
  - RENAL FAILURE [None]
